FAERS Safety Report 10142939 (Version 3)
Quarter: 2014Q4

REPORT INFORMATION
  Report Type: Spontaneous
  Country: FR (occurrence: FR)
  Receive Date: 20140430
  Receipt Date: 20141027
  Transmission Date: 20150528
  Serious: Yes (Other)
  Sender: FDA-Public Use
  Company Number: FR-JNJFOC-20140417866

PATIENT
  Age: 55 Year
  Sex: Female

DRUGS (2)
  1. ARAVA [Concomitant]
     Active Substance: LEFLUNOMIDE
     Indication: RHEUMATOID ARTHRITIS
     Route: 065
     Dates: start: 20131102, end: 20140206
  2. GOLIMUMAB [Suspect]
     Active Substance: GOLIMUMAB
     Indication: RHEUMATOID ARTHRITIS
     Route: 058
     Dates: start: 20121101, end: 20140404

REACTIONS (2)
  - Alopecia [Not Recovered/Not Resolved]
  - Alopecia universalis [Not Recovered/Not Resolved]

NARRATIVE: CASE EVENT DATE: 201402
